FAERS Safety Report 9170171 (Version 2)
Quarter: 2013Q1

REPORT INFORMATION
  Report Type: Spontaneous
  Country: BR (occurrence: BR)
  Receive Date: 20130319
  Receipt Date: 20130329
  Transmission Date: 20140127
  Serious: Yes (Other)
  Sender: FDA-Public Use
  Company Number: PHHY2013BR025926

PATIENT
  Sex: Female
  Weight: 80 kg

DRUGS (8)
  1. TEGRETOL CR [Suspect]
     Indication: TRIGEMINAL NEURALGIA
     Dosage: 100 MG, 2 DF, DAILY
     Route: 048
  2. TEGRETOL CR [Suspect]
     Dosage: 200 MG, 2 DF, DAILY
     Route: 048
  3. TEGRETOL CR [Suspect]
     Dosage: 400 MG, 2 DF, DAILY
     Route: 048
  4. TEGRETOL CR [Suspect]
     Dosage: 200 MG, 2 DF, DAILY
     Route: 048
  5. HIDANTAL [Suspect]
     Indication: TRIGEMINAL NEURALGIA
     Dosage: 2 DF, DAILY
     Route: 048
  6. HIDANTAL [Suspect]
     Dosage: 0.5 DF, DAILY
     Route: 048
  7. VERAPAMIL HYDROCHLORIDE [Concomitant]
     Indication: BLOOD PRESSURE FLUCTUATION
     Dosage: 3 DF, DAILY
  8. LOSARTAN [Concomitant]
     Indication: BLOOD PRESSURE FLUCTUATION
     Dosage: 1 DF, DAILY

REACTIONS (4)
  - Labyrinthitis [Recovered/Resolved]
  - Syncope [Recovered/Resolved]
  - Dizziness [Recovered/Resolved]
  - Drug intolerance [Unknown]
